FAERS Safety Report 6360803-3 (Version None)
Quarter: 2009Q3

REPORT INFORMATION
  Report Type: 
  Country: None (occurrence: None)
  Receive Date: 20090918
  Receipt Date: 20090818
  Transmission Date: 20100115
  Serious: No
  Sender: FDA-Public Use
  Company Number: US-BAYER-200930269NA

PATIENT
  Sex: Female

DRUGS (1)
  1. AVELOX [Suspect]
     Indication: SINUSITIS
     Dates: start: 20090716

REACTIONS (4)
  - CONTUSION [None]
  - DIZZINESS [None]
  - SPUTUM DISCOLOURED [None]
  - TENDONITIS [None]
